FAERS Safety Report 9099687 (Version 2)
Quarter: 2013Q2

REPORT INFORMATION
  Report Type: Spontaneous
  Country: US (occurrence: US)
  Receive Date: 20130214
  Receipt Date: 20130403
  Transmission Date: 20140414
  Serious: Yes (Other)
  Sender: FDA-Public Use
  Company Number: US-BRISTOL-MYERS SQUIBB COMPANY-17355306

PATIENT
  Sex: 0

DRUGS (2)
  1. ORENCIA [Suspect]
     Route: 042
  2. PREDNISONE [Concomitant]

REACTIONS (1)
  - Arthropathy [Unknown]
